FAERS Safety Report 7367980-6 (Version None)
Quarter: 2011Q1

REPORT INFORMATION
  Report Type: 
  Country: None (occurrence: None)
  Receive Date: 20110322
  Receipt Date: 20110318
  Transmission Date: 20110831
  Serious: Yes (Life-Threatening)
  Sender: FDA-Public Use
  Company Number: PHHY2011CH22069

PATIENT
  Sex: Male

DRUGS (1)
  1. CLOPIN ECO [Suspect]
     Dosage: 600 MG, UNK
     Route: 048

REACTIONS (3)
  - RESPIRATORY DISORDER [None]
  - VENOUS THROMBOSIS LIMB [None]
  - COMA [None]
